FAERS Safety Report 20722534 (Version 1)
Quarter: 2022Q2

REPORT INFORMATION
  Report Type: Spontaneous
  Country: IL (occurrence: IL)
  Receive Date: 20220418
  Receipt Date: 20220418
  Transmission Date: 20220721
  Serious: Yes (Hospitalization, Other)
  Sender: FDA-Public Use
  Company Number: IL-CELGENE-ISR-20211200052

PATIENT
  Age: 70 Year
  Sex: Male
  Weight: 88 kg

DRUGS (21)
  1. AZACITIDINE [Suspect]
     Active Substance: AZACITIDINE
     Indication: Acute myeloid leukaemia
     Dosage: FREQUENCY TEXT: DAYS 1-5 OF CYCLE?20 MILLIGRAM/SQ. METER
     Route: 042
     Dates: start: 20210214, end: 20210610
  2. VENETOCLAX [Suspect]
     Active Substance: VENETOCLAX
     Indication: Acute myeloid leukaemia
     Dosage: FREQUENCY TEXT: NOT PROVIDED?50 MILLIGRAM
     Route: 048
     Dates: start: 20210214, end: 20210609
  3. VENETOCLAX [Suspect]
     Active Substance: VENETOCLAX
     Dosage: FREQUENCY TEXT: NOT PROVIDED?200 MILLIGRAM
     Route: 048
     Dates: start: 20210610, end: 20210703
  4. PRAVASTATIN [Concomitant]
     Active Substance: PRAVASTATIN
     Indication: Hyperlipidaemia
     Dosage: 10 MILLIGRAM
     Route: 048
     Dates: start: 20210218, end: 20210228
  5. PRAVASTATIN [Concomitant]
     Active Substance: PRAVASTATIN
     Dosage: 20 MILLIGRAM
     Route: 048
     Dates: start: 20210301
  6. AVODART [Concomitant]
     Active Substance: DUTASTERIDE
     Indication: Prostatomegaly
     Dosage: .5 MILLIGRAM
     Route: 048
     Dates: start: 2014
  7. ALFUZOSIN [Concomitant]
     Active Substance: ALFUZOSIN
     Indication: Prostatomegaly
     Dosage: 10 MILLIGRAM
     Route: 048
     Dates: start: 2014
  8. METFORMIN HYDROCHLORIDE [Concomitant]
     Active Substance: METFORMIN HYDROCHLORIDE
     Indication: Diabetes mellitus
     Dosage: 1700 MILLIGRAM
     Route: 048
     Dates: start: 2017
  9. NEXIUM [Concomitant]
     Active Substance: ESOMEPRAZOLE MAGNESIUM
     Indication: Gastrooesophageal reflux disease
     Dosage: 20 MILLIGRAM
     Route: 048
     Dates: start: 201909
  10. VITAMIN D [Concomitant]
     Active Substance: VITAMIN D NOS
     Indication: Product used for unknown indication
     Dosage: 1200 IU (INTERNATIONAL UNIT)
     Route: 048
     Dates: start: 20210411
  11. CALCIUM CARBONATE+LACTATE+GLUCONATE CD [Concomitant]
     Indication: Blood calcium decreased
     Dosage: 1 IU (INTERNATIONAL UNIT)
     Route: 048
     Dates: start: 20210411
  12. SULFAMETHOXAZOLE\TRIMETHOPRIM [Concomitant]
     Active Substance: SULFAMETHOXAZOLE\TRIMETHOPRIM
     Indication: Bacterial infection
     Dosage: 1920 MILLIGRAM
     Route: 048
     Dates: start: 20210103
  13. CLOBETASOL [Concomitant]
     Active Substance: CLOBETASOL
     Indication: Graft versus host disease
     Dosage: EPIDERMAL ROUTE
     Route: 065
     Dates: start: 20210509
  14. BISOPROLOL FUMARATE [Concomitant]
     Active Substance: BISOPROLOL FUMARATE
     Indication: Hypertension
     Dosage: 1.25 MILLIGRAM
     Route: 048
     Dates: start: 20210505
  15. LIPITOR [Concomitant]
     Active Substance: ATORVASTATIN CALCIUM
     Indication: Hyperlipidaemia
     Dosage: 80 MILLIGRAM
     Route: 048
     Dates: start: 20210429
  16. RAMIPRIL [Concomitant]
     Active Substance: RAMIPRIL
     Indication: Hypertension
     Dosage: 1.25 MILLIGRAM
     Route: 048
     Dates: start: 20210107
  17. FUSID [Concomitant]
     Indication: Cardiac failure
     Dosage: 20 MILLIGRAM
     Route: 048
     Dates: start: 20210610
  18. ZOVIRAX [Concomitant]
     Active Substance: ACYCLOVIR
     Indication: Prophylaxis
     Dosage: 800 MILLIGRAM
     Route: 048
     Dates: start: 20210103, end: 20210207
  19. ZOVIRAX [Concomitant]
     Active Substance: ACYCLOVIR
     Dosage: 800 MILLIGRAM
     Route: 048
     Dates: start: 20211116
  20. PREDNISONE [Concomitant]
     Active Substance: PREDNISONE
     Indication: Graft versus host disease
     Dosage: 5 MILLIGRAM
     Route: 048
     Dates: start: 20210829
  21. ASPIRIN [Concomitant]
     Active Substance: ASPIRIN
     Indication: Prophylaxis
     Dosage: 100 MILLIGRAM
     Route: 048
     Dates: start: 20210912

REACTIONS (2)
  - Herpes zoster [Not Recovered/Not Resolved]
  - IIIrd nerve paralysis [Not Recovered/Not Resolved]

NARRATIVE: CASE EVENT DATE: 20211116
